FAERS Safety Report 4511766-4 (Version None)
Quarter: 2004Q4

REPORT INFORMATION
  Report Type: 
  Country: None (occurrence: None)
  Receive Date: 20041124
  Receipt Date: 20041116
  Transmission Date: 20050328
  Serious: Yes (Other)
  Sender: FDA-Public Use
  Company Number: PHBS2004FI15420

PATIENT

DRUGS (3)
  1. GLEEVEC [Suspect]
     Indication: CHRONIC MYELOID LEUKAEMIA
     Dosage: 400 MG/D
     Route: 048
     Dates: start: 20041001
  2. CORTISONE [Concomitant]
  3. METHOTREXATE [Suspect]

REACTIONS (12)
  - APATHY [None]
  - BITE [None]
  - CONTUSION [None]
  - DEPRESSED MOOD [None]
  - EMOTIONAL DISORDER [None]
  - EPILEPSY [None]
  - FATIGUE [None]
  - FEELING ABNORMAL [None]
  - HEADACHE [None]
  - IRRITABILITY [None]
  - LOSS OF CONSCIOUSNESS [None]
  - URINARY INCONTINENCE [None]
